FAERS Safety Report 20805134 (Version 2)
Quarter: 2022Q3

REPORT INFORMATION
  Report Type: Spontaneous
  Country: US (occurrence: US)
  Receive Date: 20220509
  Receipt Date: 20220827
  Transmission Date: 20221026
  Serious: No
  Sender: FDA-Public Use
  Company Number: US-BRISTOL-MYERS SQUIBB COMPANY-2022-025893

PATIENT
  Age: 73 Year
  Sex: Male
  Weight: 68.3 kg

DRUGS (2)
  1. REVLIMID [Suspect]
     Active Substance: LENALIDOMIDE
     Indication: Follicular lymphoma
     Dosage: 3W, 1W OFF?DAILY 21/28
     Route: 048
     Dates: start: 20220401
  2. REVLIMID [Suspect]
     Active Substance: LENALIDOMIDE
     Indication: Follicular lymphoma
     Dosage: DAILY D2-22, 7OFF
     Route: 048
     Dates: start: 20220301

REACTIONS (5)
  - Pollakiuria [Unknown]
  - Diarrhoea [Unknown]
  - Nausea [Unknown]
  - Vomiting [Unknown]
  - Intentional product use issue [Unknown]
